FAERS Safety Report 7625432-X (Version None)
Quarter: 2011Q3

REPORT INFORMATION
  Report Type: 
  Country: None (occurrence: None)
  Receive Date: 20110721
  Receipt Date: 20110714
  Transmission Date: 20111222
  Serious: Yes (Hospitalization)
  Sender: FDA-Public Use
  Company Number: US-JNJFOC-20110706402

PATIENT
  Sex: Female
  Weight: 78.93 kg

DRUGS (5)
  1. BENTYL [Concomitant]
     Indication: GASTROINTESTINAL DISORDER
     Dosage: 10 MG/CAPSULE/120 MG
     Route: 048
  2. VERAPAMIL [Concomitant]
     Indication: CARDIAC DISORDER
     Route: 048
     Dates: start: 20090101
  3. DURAGESIC-100 [Suspect]
     Indication: RHEUMATOID ARTHRITIS
     Route: 062
     Dates: start: 20100101
  4. NEXIUM [Concomitant]
     Indication: GASTROINTESTINAL DISORDER
     Route: 048
     Dates: end: 20110601
  5. PERCOCET [Concomitant]
     Indication: PAIN
     Dosage: 1-2 TABLETS EVERY 4 HOURS AS NEEDED
     Route: 048

REACTIONS (7)
  - GASTROINTESTINAL MOTILITY DISORDER [None]
  - INTESTINAL HAEMORRHAGE [None]
  - VOLVULUS [None]
  - PRODUCT ADHESION ISSUE [None]
  - ABNORMAL LOSS OF WEIGHT [None]
  - VISUAL ACUITY REDUCED [None]
  - DRUG INEFFECTIVE [None]
